FAERS Safety Report 15382676 (Version 1)
Quarter: 2018Q3

REPORT INFORMATION
  Report Type: Spontaneous
  Country: US (occurrence: US)
  Receive Date: 20180913
  Receipt Date: 20180913
  Transmission Date: 20181010
  Serious: No
  Sender: FDA-Public Use
  Company Number: US-ASTELLAS-2017US047483

PATIENT
  Age: 69 Year
  Sex: Male

DRUGS (2)
  1. XTANDI [Suspect]
     Active Substance: ENZALUTAMIDE
     Route: 065
  2. XTANDI [Suspect]
     Active Substance: ENZALUTAMIDE
     Indication: PROSTATE CANCER
     Route: 065
     Dates: start: 20171018

REACTIONS (10)
  - Abdominal discomfort [Unknown]
  - Chest pain [Unknown]
  - Fatigue [Unknown]
  - Ear infection [Unknown]
  - Arthropathy [Unknown]
  - Underdose [Unknown]
  - Decreased appetite [Unknown]
  - Dyspnoea [Unknown]
  - Asthenia [Unknown]
  - Musculoskeletal discomfort [Unknown]

NARRATIVE: CASE EVENT DATE: 201803
